FAERS Safety Report 11636828 (Version 1)
Quarter: 2015Q4

REPORT INFORMATION
  Report Type: Spontaneous
  Country: US (occurrence: US)
  Receive Date: 20151016
  Receipt Date: 20151016
  Transmission Date: 20160304
  Serious: No
  Sender: FDA-Public Use
  Company Number: US-GALDERMA-US15006031

PATIENT
  Age: 70 Year
  Sex: Female

DRUGS (20)
  1. OMEGA 3 FISH OIL [Concomitant]
     Active Substance: FISH OIL\OMEGA-3 FATTY ACIDS
     Route: 048
  2. GENERAL NUTRITIONA CENTER PRIOBIOTIC [Concomitant]
     Route: 048
     Dates: start: 2010
  3. VERAPAMIL [Concomitant]
     Active Substance: VERAPAMIL HYDROCHLORIDE
     Indication: HYPERTENSION
     Dosage: 240MG
     Route: 048
  4. METFORMIN [Concomitant]
     Active Substance: METFORMIN HYDROCHLORIDE
     Indication: GLUCOSE TOLERANCE IMPAIRED
     Dosage: 500MG
     Route: 048
  5. MIRALAX (POLYETHYLENE GLYCOL 3350) [Concomitant]
     Route: 048
  6. SOOLANTRA [Suspect]
     Active Substance: IVERMECTIN
     Indication: ROSACEA
     Dosage: 1%
     Route: 061
     Dates: start: 20150601
  7. VITAMIN D [Concomitant]
     Active Substance: CHOLECALCIFEROL
     Dosage: 2000MG
     Route: 048
  8. CENTRUM SILVER VITAMIN [Concomitant]
     Route: 048
  9. ASPIRIN. [Concomitant]
     Active Substance: ASPIRIN
     Indication: PROPHYLAXIS
     Dosage: 2 TABS
     Route: 048
  10. MAGNESIUM [Concomitant]
     Active Substance: MAGNESIUM
     Indication: MUSCLE SPASMS
     Dosage: 250MG
     Route: 048
  11. DULCOLAX (BISACODYL) [Concomitant]
     Active Substance: BISACODYL
     Route: 048
  12. METAMUCIL (PHYLLIUM) [Concomitant]
     Route: 048
  13. FINACEA [Concomitant]
     Active Substance: AZELAIC ACID
     Indication: ROSACEA
     Route: 061
     Dates: start: 201506
  14. CETAPHIL DAILY FACIAL CLEANSER [Concomitant]
     Active Substance: COSMETICS
     Indication: THERAPEUTIC SKIN CARE TOPICAL
     Route: 061
     Dates: start: 201404
  15. TAMOXIFIN [Concomitant]
     Dosage: 20MG
     Route: 048
     Dates: start: 20150601
  16. VITAMIN E [Concomitant]
     Active Substance: .ALPHA.-TOCOPHEROL
     Route: 048
  17. UNKNOWN SUNSCREEN [Concomitant]
     Indication: PROPHYLAXIS AGAINST SOLAR RADIATION
     Route: 061
  18. CETAPHIL [Concomitant]
     Active Substance: AVOBENZONE\OCTOCRYLENE\TRICLOSAN
     Indication: THERAPEUTIC SKIN CARE TOPICAL
     Route: 061
     Dates: start: 201404
  19. NEUTROGENA ACNE STRESS CONTROL TONER [Concomitant]
     Route: 061
     Dates: start: 201504
  20. LOSARTIN [Concomitant]
     Active Substance: LOSARTAN
     Indication: HYPERTENSION
     Dosage: 100MG
     Route: 048

REACTIONS (1)
  - Haematochezia [Recovered/Resolved]

NARRATIVE: CASE EVENT DATE: 201506
